FAERS Safety Report 23662564 (Version 1)
Quarter: 2024Q1

REPORT INFORMATION
  Report Type: Report from Study
  Country: ES (occurrence: ES)
  Receive Date: 20240322
  Receipt Date: 20240322
  Transmission Date: 20240410
  Serious: Yes (Hospitalization)
  Sender: FDA-Public Use
  Company Number: ES-Eisai Medical Research-EC-2023-143010

PATIENT
  Age: 53 Year
  Sex: Female
  Weight: 95.5 kg

DRUGS (4)
  1. LENVATINIB [Suspect]
     Active Substance: LENVATINIB
     Indication: Small cell lung cancer extensive stage
     Route: 048
     Dates: start: 20230508, end: 20230612
  2. CARBOPLATIN [Suspect]
     Active Substance: CARBOPLATIN
     Indication: Small cell lung cancer extensive stage
     Dosage: FREQUENCY UNKNOWN
     Route: 042
     Dates: start: 20230508, end: 20230529
  3. ETOPOSIDE [Suspect]
     Active Substance: ETOPOSIDE
     Indication: Small cell lung cancer extensive stage
     Dosage: FREQUENCY UNKNOWN
     Route: 042
     Dates: start: 20230508, end: 20230531
  4. PEMBROLIZUMAB [Suspect]
     Active Substance: PEMBROLIZUMAB
     Indication: Small cell lung cancer extensive stage
     Route: 041
     Dates: start: 20230508, end: 20230529

REACTIONS (1)
  - Overdose [Recovered/Resolved]

NARRATIVE: CASE EVENT DATE: 20230614
